FAERS Safety Report 21064279 (Version 1)
Quarter: 2022Q3

REPORT INFORMATION
  Report Type: Spontaneous
  Country: CN (occurrence: CN)
  Receive Date: 20220711
  Receipt Date: 20220711
  Transmission Date: 20221027
  Serious: Yes (Other)
  Sender: FDA-Public Use
  Company Number: None

PATIENT
  Age: 94 Year
  Sex: Male
  Weight: 50 kg

DRUGS (2)
  1. MANNITOL [Suspect]
     Active Substance: MANNITOL
     Indication: Reduction of increased intracranial pressure
     Dosage: 125 ML, TID, INJECTION
     Route: 041
     Dates: start: 20220619, end: 20220622
  2. MANNITOL [Suspect]
     Active Substance: MANNITOL
     Indication: Brain oedema

REACTIONS (1)
  - Acute kidney injury [Recovering/Resolving]

NARRATIVE: CASE EVENT DATE: 20220622
